FAERS Safety Report 18629844 (Version 1)
Quarter: 2020Q4

REPORT INFORMATION
  Report Type: Spontaneous
  Country: US (occurrence: US)
  Receive Date: 20201217
  Receipt Date: 20201217
  Transmission Date: 20210114
  Serious: Yes (Life-Threatening, Hospitalization)
  Sender: FDA-Public Use
  Company Number: US-ROCHE-2734620

PATIENT
  Age: 38 Year
  Sex: Female

DRUGS (3)
  1. VALGANCICLOVIR. [Suspect]
     Active Substance: VALGANCICLOVIR
     Indication: CYTOMEGALOVIRUS INFECTION
     Route: 048
     Dates: start: 20200822, end: 20200917
  2. GANCICLOVIR SODIUM. [Suspect]
     Active Substance: GANCICLOVIR SODIUM
     Indication: CYTOMEGALOVIRUS INFECTION
     Dosage: 5 MG/KG
     Route: 042
     Dates: start: 20200819, end: 20200821
  3. FOSCAVIR [Suspect]
     Active Substance: FOSCARNET SODIUM
     Indication: CYTOMEGALOVIRUS INFECTION
     Dosage: 30 MG/KG
     Route: 042
     Dates: start: 20200918, end: 20201002

REACTIONS (2)
  - Drug resistance [Unknown]
  - Acute kidney injury [Unknown]

NARRATIVE: CASE EVENT DATE: 20201002
